FAERS Safety Report 4926962-1 (Version None)
Quarter: 2006Q1

REPORT INFORMATION
  Report Type: 
  Country: None (occurrence: None)
  Receive Date: 20060228
  Receipt Date: 20050921
  Transmission Date: 20060701
  Serious: No
  Sender: FDA-Public Use
  Company Number: S2005US14721

PATIENT
  Age: 44 Year
  Sex: Male

DRUGS (3)
  1. LAMICTAL [Suspect]
     Indication: SCHIZOPHRENIA
     Dosage: 37.5MG PER DAY
     Route: 048
     Dates: start: 20050726, end: 20050814
  2. DEPAKOTE [Concomitant]
  3. CLOZARIL [Concomitant]

REACTIONS (1)
  - RASH [None]
